FAERS Safety Report 9282512 (Version 1)
Quarter: 2013Q2

REPORT INFORMATION
  Report Type: Spontaneous
  Country: AU (occurrence: AU)
  Receive Date: 20130510
  Receipt Date: 20130510
  Transmission Date: 20140414
  Serious: Yes (Other)
  Sender: FDA-Public Use
  Company Number: AU-PFIZER INC-2013141361

PATIENT
  Sex: Female

DRUGS (1)
  1. DEPO-MEDROL [Suspect]
     Dosage: INTO THE HIP JOINT EVERY 3-6 MONTHS
     Route: 014

REACTIONS (2)
  - Diabetes mellitus [Unknown]
  - Osteoporosis [Unknown]
